FAERS Safety Report 4960506-3 (Version None)
Quarter: 2006Q1

REPORT INFORMATION
  Report Type: 
  Country: None (occurrence: None)
  Receive Date: 20060328
  Receipt Date: 20060320
  Transmission Date: 20060701
  Serious: Yes (Hospitalization)
  Sender: FDA-Public Use
  Company Number: TCI2006A01023

PATIENT
  Age: 57 Year
  Sex: Male

DRUGS (6)
  1. LANSAP 800 (LANSOPRAZOLE, CLARITHROMYCIN, AMOXICILLIN) (PREPARATION FO [Suspect]
     Indication: DUODENAL ULCER
     Dosage: 1 CARD (0.5 CARD, 2 IN 1 D), PER ORAL
     Route: 048
     Dates: start: 20060217, end: 20060224
  2. LANSAP 800 (LANSOPRAZOLE, CLARITHROMYCIN, AMOXICILLIN) (PREPARATION FO [Suspect]
     Indication: GASTRIC ULCER
     Dosage: 1 CARD (0.5 CARD, 2 IN 1 D), PER ORAL
     Route: 048
     Dates: start: 20060217, end: 20060224
  3. LANSAP 800 (LANSOPRAZOLE, CLARITHROMYCIN, AMOXICILLIN) (PREPARATION FO [Suspect]
     Indication: HELICOBACTER INFECTION
     Dosage: 1 CARD (0.5 CARD, 2 IN 1 D), PER ORAL
     Route: 048
     Dates: start: 20060217, end: 20060224
  4. BASEN TABLETS (VOGLIBOSE) (TABLETS) [Concomitant]
  5. NORVASC [Concomitant]
  6. NU-LOTAN (LOSARTAN POTASSIUM) (TABLETS) [Concomitant]

REACTIONS (4)
  - C-REACTIVE PROTEIN INCREASED [None]
  - DIARRHOEA [None]
  - HAEMATURIA [None]
  - RENAL FAILURE ACUTE [None]
